FAERS Safety Report 8318910-1 (Version None)
Quarter: 2012Q2

REPORT INFORMATION
  Report Type: 
  Country: None (occurrence: None)
  Receive Date: 20120427
  Receipt Date: 20110926
  Transmission Date: 20120825
  Serious: Yes (Hospitalization)
  Sender: FDA-Public Use
  Company Number: US-ASTRAZENECA-2011SE49558

PATIENT
  Age: 57 Year
  Sex: Male
  Weight: 99.8 kg

DRUGS (1)
  1. SEROQUEL [Suspect]
     Indication: BIPOLAR I DISORDER
     Route: 048

REACTIONS (2)
  - CLOSTRIDIUM DIFFICILE COLITIS [None]
  - APPENDICITIS PERFORATED [None]
